FAERS Safety Report 16320973 (Version 2)
Quarter: 2019Q3

REPORT INFORMATION
  Report Type: Spontaneous
  Country: US (occurrence: US)
  Receive Date: 20190516
  Receipt Date: 20190710
  Transmission Date: 20191004
  Serious: No
  Sender: FDA-Public Use
  Company Number: US-EX USA HOLDINGS-EXHL20192238

PATIENT
  Sex: Female
  Weight: 54.5 kg

DRUGS (1)
  1. PREVIFEM [Suspect]
     Active Substance: ETHINYL ESTRADIOL\NORGESTIMATE
     Indication: CONTRACEPTION
     Dosage: UNKNOWN
     Route: 048

REACTIONS (4)
  - Acne [Recovered/Resolved]
  - Rash [Recovered/Resolved]
  - Skin reaction [Recovered/Resolved]
  - Product substitution issue [None]
